FAERS Safety Report 6188494-5 (Version None)
Quarter: 2009Q2

REPORT INFORMATION
  Report Type: 
  Country: None (occurrence: None)
  Receive Date: 20090513
  Receipt Date: 20090501
  Transmission Date: 20091009
  Serious: Yes (Death)
  Sender: FDA-Public Use
  Company Number: US-PFIZER INC-2009169501

PATIENT
  Sex: Male

DRUGS (3)
  1. SUTENT [Suspect]
     Indication: METASTATIC RENAL CELL CARCINOMA
     Dosage: 50 MG, 4 WEEKS ON/2 WEEKS OFF
     Route: 048
     Dates: start: 20090101
  2. ZOMETA [Concomitant]
  3. MEGACE [Concomitant]

REACTIONS (1)
  - DEATH [None]
